FAERS Safety Report 7981550-8 (Version None)
Quarter: 2011Q4

REPORT INFORMATION
  Report Type: 
  Country: None (occurrence: None)
  Receive Date: 20111215
  Receipt Date: 20111212
  Transmission Date: 20120403
  Serious: Yes (Other)
  Sender: FDA-Public Use
  Company Number: US-PFIZER INC-2011062592

PATIENT
  Sex: Male
  Weight: 93 kg

DRUGS (18)
  1. CORDARONE [Concomitant]
     Dosage: 400 MG, DAILY
     Route: 048
  2. CHANTIX [Suspect]
     Dosage: 0.5 MG, 1X/DAY
     Route: 048
     Dates: start: 20110223, end: 20110101
  3. CHANTIX [Suspect]
     Dosage: 1 MG, 2X/DAY
     Route: 048
     Dates: start: 20110101, end: 20110101
  4. ATENOLOL [Concomitant]
     Dosage: UNK
  5. HYDROCHLOROTHIAZIDE [Concomitant]
     Indication: HYPERTENSION
     Dosage: 12.5 MG, 1X/DAY
     Route: 048
  6. NASONEX [Concomitant]
     Dosage: UNK
  7. KLONOPIN [Concomitant]
     Dosage: UNK
     Route: 048
  8. OMEPRAZOLE [Concomitant]
     Dosage: UNK
  9. CLOZARIL [Concomitant]
     Dosage: UNK
  10. TRIHEXYPHENIDYL [Concomitant]
     Dosage: UNK
  11. TRAZODONE [Concomitant]
     Dosage: UNK
  12. DOXYCYCLINE [Concomitant]
     Dosage: 100 MG, 2X/DAY
  13. ATENOLOL [Concomitant]
     Indication: HYPERTENSION
     Dosage: 50 MG, 2X/DAY
     Route: 048
  14. CHANTIX [Suspect]
     Indication: SMOKING CESSATION THERAPY
     Dosage: UNK
     Route: 048
     Dates: start: 20060101, end: 20060101
  15. CHANTIX [Suspect]
     Dosage: UNK
     Route: 048
     Dates: start: 20110101
  16. LISINOPRIL AND HYDROCHLOROTHIAZIDE [Concomitant]
     Indication: CARDIAC DISORDER
     Dosage: UNK
  17. IBUPROFEN [Concomitant]
     Dosage: UNK
  18. VENTOLIN [Concomitant]
     Indication: ASTHMA
     Dosage: UNK

REACTIONS (8)
  - CHOKING [None]
  - BLOOD PRESSURE ABNORMAL [None]
  - HALLUCINATION [None]
  - ANXIETY [None]
  - ANGER [None]
  - HALLUCINATION, AUDITORY [None]
  - CONFUSIONAL STATE [None]
  - LIP SWELLING [None]
